FAERS Safety Report 7680828-5 (Version None)
Quarter: 2011Q3

REPORT INFORMATION
  Report Type: 
  Country: None (occurrence: None)
  Receive Date: 20110812
  Receipt Date: 20110808
  Transmission Date: 20111222
  Serious: Yes (Hospitalization, Other)
  Sender: FDA-Public Use
  Company Number: US-MERCK-1107USA02554

PATIENT
  Age: 52 Year
  Sex: Female
  Weight: 84 kg

DRUGS (3)
  1. FOSAMAX PLUS D [Suspect]
     Indication: OSTEOPENIA
     Route: 048
     Dates: start: 20070511, end: 20100307
  2. FOSAMAX [Suspect]
     Indication: OSTEOPENIA
     Route: 048
     Dates: start: 19980101, end: 20070510
  3. FOSAMAX [Suspect]
     Indication: OSTEOPOROSIS
     Route: 048
     Dates: start: 19980101, end: 20070510

REACTIONS (32)
  - FEMUR FRACTURE [None]
  - OSTEOMALACIA [None]
  - DRUG HYPERSENSITIVITY [None]
  - LIP AND/OR ORAL CAVITY CANCER [None]
  - HYPERSENSITIVITY [None]
  - SKIN INFECTION [None]
  - FALL [None]
  - MUSCLE SPASMS [None]
  - HYPOGONADISM [None]
  - HORMONE LEVEL ABNORMAL [None]
  - GLUCOSE TOLERANCE IMPAIRED [None]
  - FRACTURE NONUNION [None]
  - BLOOD CHOLESTEROL INCREASED [None]
  - HAND FRACTURE [None]
  - SLEEP APNOEA SYNDROME [None]
  - SLEEP DISORDER [None]
  - ECZEMA [None]
  - ATRIAL FIBRILLATION [None]
  - WRIST FRACTURE [None]
  - VIRAL INFECTION [None]
  - SPINAL DISORDER [None]
  - BRONCHITIS [None]
  - CARDIOVASCULAR DISORDER [None]
  - DYSMENORRHOEA [None]
  - NEPHROLITHIASIS [None]
  - GAIT DISTURBANCE [None]
  - SENSITISATION [None]
  - PAIN IN EXTREMITY [None]
  - APHTHOUS STOMATITIS [None]
  - TENDONITIS [None]
  - SCIATICA [None]
  - CHRONIC OBSTRUCTIVE PULMONARY DISEASE [None]
